FAERS Safety Report 5509672-1 (Version None)
Quarter: 2007Q4

REPORT INFORMATION
  Report Type: 
  Country: None (occurrence: None)
  Receive Date: 20071107
  Receipt Date: 20071107
  Transmission Date: 20080405
  Serious: Yes (Hospitalization)
  Sender: FDA-Public Use
  Company Number: None

PATIENT
  Age: 74 Year
  Sex: Male

DRUGS (1)
  1. INSULIN [Suspect]
     Indication: DIABETES MELLITUS
     Dosage: UNITS BID SQ
     Route: 058
     Dates: start: 20060919, end: 20070708

REACTIONS (4)
  - CONFUSIONAL STATE [None]
  - DECREASED APPETITE [None]
  - HYPERHIDROSIS [None]
  - HYPOGLYCAEMIA [None]
